FAERS Safety Report 18917813 (Version 1)
Quarter: 2021Q1

REPORT INFORMATION
  Report Type: Report from Study
  Country: SK (occurrence: SK)
  Receive Date: 20210219
  Receipt Date: 20210219
  Transmission Date: 20210420
  Serious: Yes (Death, Hospitalization, Other)
  Sender: FDA-Public Use
  Company Number: SK-TAKEDA-2021TUS008677

PATIENT
  Age: 73 Year
  Sex: Male
  Weight: 85 kg

DRUGS (1)
  1. HUMAN IMMUNOGLOBULIN; HYALURONIDASE [Suspect]
     Active Substance: HUMAN IMMUNOGLOBULIN G\HYALURONIDASE RECOMBINANT HUMAN
     Indication: PRODUCT USED FOR UNKNOWN INDICATION
     Dosage: 30G 300 ML, MONTHLY
     Route: 065
     Dates: start: 20201203, end: 20210130

REACTIONS (4)
  - Plasma cell myeloma [Fatal]
  - COVID-19 [Fatal]
  - Uterine cancer [Fatal]
  - Blood pressure increased [Fatal]

NARRATIVE: CASE EVENT DATE: 20210130
